FAERS Safety Report 21240913 (Version 1)
Quarter: 2022Q3

REPORT INFORMATION
  Report Type: Spontaneous
  Country: US (occurrence: None)
  Receive Date: 20220822
  Receipt Date: 20220822
  Transmission Date: 20221027
  Serious: Yes (Hospitalization)
  Sender: FDA-Public Use
  Company Number: None

PATIENT
  Age: 92 Year
  Sex: Male
  Weight: 70.65 kg

DRUGS (4)
  1. PAXLOVID [Suspect]
     Active Substance: NIRMATRELVIR\RITONAVIR
     Indication: COVID-19
     Dates: start: 20220820, end: 20220821
  2. LEVETIRACETAM [Concomitant]
     Active Substance: LEVETIRACETAM
  3. METOPROLOL [Concomitant]
     Active Substance: METOPROLOL
  4. DABIGATRAN [Concomitant]
     Active Substance: DABIGATRAN

REACTIONS (1)
  - Syncope [None]

NARRATIVE: CASE EVENT DATE: 20220821
